FAERS Safety Report 24965237 (Version 1)
Quarter: 2025Q1

REPORT INFORMATION
  Report Type: Spontaneous
  Country: US (occurrence: US)
  Receive Date: 20250213
  Receipt Date: 20250213
  Transmission Date: 20250409
  Serious: Yes (Hospitalization)
  Sender: AMGEN
  Company Number: US-AMGEN-USASP2025026587

PATIENT
  Age: 80 Year
  Sex: Male

DRUGS (24)
  1. OTEZLA [Suspect]
     Active Substance: APREMILAST
     Indication: Psoriasis
     Dosage: 30 MILLIGRAM, BID
     Route: 048
     Dates: start: 20250114
  2. Artificial tears [Concomitant]
  3. CALCIPOTRIENE [Concomitant]
     Active Substance: CALCIPOTRIENE
  4. ASPIRIN [Concomitant]
     Active Substance: ASPIRIN
  5. CLOPIDOGREL [Concomitant]
     Active Substance: CLOPIDOGREL BISULFATE
  6. DONEPEZIL [Concomitant]
     Active Substance: DONEPEZIL
  7. AMLODIPINE BESYLATE [Concomitant]
     Active Substance: AMLODIPINE BESYLATE
  8. ATORVASTATIN [Concomitant]
     Active Substance: ATORVASTATIN
  9. BUPROPION HYDROCHLORIDE [Concomitant]
     Active Substance: BUPROPION HYDROCHLORIDE
  10. CARVEDILOL [Concomitant]
     Active Substance: CARVEDILOL
  11. FAMOTIDINE [Concomitant]
     Active Substance: FAMOTIDINE
  12. LOSARTAN POTASSIUM [Concomitant]
     Active Substance: LOSARTAN POTASSIUM
  13. LATANOPROST [Concomitant]
     Active Substance: LATANOPROST
  14. FERROUS GLUCONATE [Concomitant]
     Active Substance: FERROUS GLUCONATE
  15. CELECOXIB [Concomitant]
     Active Substance: CELECOXIB
  16. VITAMIN B12 [Concomitant]
     Active Substance: CYANOCOBALAMIN
  17. CYCLOBENZAPRINE [Concomitant]
     Active Substance: CYCLOBENZAPRINE
  18. MEDROL [Concomitant]
     Active Substance: METHYLPREDNISOLONE
  19. TRAMADOL [Concomitant]
     Active Substance: TRAMADOL
  20. ALBUTEROL SULFATE [Concomitant]
     Active Substance: ALBUTEROL SULFATE
  21. FOLIC ACID [Concomitant]
     Active Substance: FOLIC ACID
  22. VITAMIN D3 [Concomitant]
     Active Substance: CHOLECALCIFEROL
  23. ACETAMINOPHEN [Concomitant]
     Active Substance: ACETAMINOPHEN
  24. VITAMIN C [Concomitant]
     Active Substance: ASCORBIC ACID

REACTIONS (1)
  - Pneumonia [Not Recovered/Not Resolved]

NARRATIVE: CASE EVENT DATE: 20250120
